FAERS Safety Report 20658312 (Version 2)
Quarter: 2022Q2

REPORT INFORMATION
  Report Type: Spontaneous
  Country: US (occurrence: US)
  Receive Date: 20220331
  Receipt Date: 20220408
  Transmission Date: 20220721
  Serious: Yes (Hospitalization, Other)
  Sender: FDA-Public Use
  Company Number: US-Global Blood Therapeutics Inc-US-GBT-22-01599

PATIENT
  Sex: Male

DRUGS (4)
  1. OXBRYTA [Suspect]
     Active Substance: VOXELOTOR
     Indication: Sickle cell disease
     Dates: start: 202201, end: 20220323
  2. HUMAN RED BLOOD CELL [Concomitant]
     Active Substance: HUMAN RED BLOOD CELL
     Indication: Sickle cell disease
     Dosage: 1 PINT
     Dates: start: 2022, end: 2022
  3. HUMAN RED BLOOD CELL [Concomitant]
     Active Substance: HUMAN RED BLOOD CELL
     Dosage: 1 PINT
     Dates: start: 20220324, end: 20220324
  4. HUMAN RED BLOOD CELL [Concomitant]
     Active Substance: HUMAN RED BLOOD CELL
     Dosage: 1 PINT
     Dates: start: 20220325, end: 20220325

REACTIONS (13)
  - Mental impairment [Unknown]
  - Pallor [Unknown]
  - Renal impairment [Unknown]
  - Gastrointestinal haemorrhage [Unknown]
  - Arrhythmia [Recovered/Resolved]
  - Haemoglobin decreased [Recovered/Resolved]
  - Pain in extremity [Unknown]
  - Asthenia [Unknown]
  - Plantar fasciitis [Not Recovered/Not Resolved]
  - Mobility decreased [Not Recovered/Not Resolved]
  - Gait disturbance [Unknown]
  - Malaise [Unknown]
  - Therapy cessation [Unknown]

NARRATIVE: CASE EVENT DATE: 20220101
